FAERS Safety Report 7108833-8 (Version None)
Quarter: 2010Q4

REPORT INFORMATION
  Report Type: 
  Country: None (occurrence: None)
  Receive Date: 20101112
  Receipt Date: 20101102
  Transmission Date: 20110411
  Serious: Yes (Hospitalization, Other)
  Sender: FDA-Public Use
  Company Number: 744025

PATIENT
  Age: 63 Year
  Sex: Female

DRUGS (2)
  1. PIPERACILLIN AND TAZOBACTAM [Suspect]
     Indication: UROSEPSIS
     Dosage: 1500 MG/24 H, INTRAVENOUS DRIP
     Route: 041
  2. (PHENYTOIN) [Concomitant]

REACTIONS (2)
  - ENCEPHALOPATHY [None]
  - STATUS EPILEPTICUS [None]
